FAERS Safety Report 8854653 (Version 1)
Quarter: 2012Q4

REPORT INFORMATION
  Report Type: 
  Country: US (occurrence: US)
  Receive Date: 20121023
  Receipt Date: 20121023
  Transmission Date: 20130627
  Serious: Yes (Hospitalization, Other)
  Sender: FDA-Public Use
  Company Number: US-JNJFOC-20121008590

PATIENT
  Age: 63 Year
  Sex: Male
  Weight: 80.74 kg

DRUGS (3)
  1. DOXIL [Suspect]
     Indication: MULTIPLE MYELOMA
     Route: 042
  2. DOXIL [Suspect]
     Indication: MULTIPLE MYELOMA
     Dosage: 1, 4, 8 and 11 of each 21 day cycle
     Route: 042
     Dates: start: 20120824, end: 201209
  3. VELCADE [Suspect]
     Indication: MULTIPLE MYELOMA
     Dosage: on days 1, 4, 8 and 11 of each 21 day cycle
     Route: 058
     Dates: start: 20120824, end: 201209

REACTIONS (3)
  - Renal failure acute [Unknown]
  - Cellulitis [Unknown]
  - Plasma cell myeloma [Unknown]
